FAERS Safety Report 9891446 (Version 1)
Quarter: 2014Q1

REPORT INFORMATION
  Report Type: Spontaneous
  Country: GB (occurrence: None)
  Receive Date: 20140207
  Receipt Date: 20140207
  Transmission Date: 20141002
  Serious: Yes (Other)
  Sender: FDA-Public Use
  Company Number: 2014P1000795

PATIENT
  Age: 78 Year
  Sex: Male

DRUGS (4)
  1. AMLODIPINE [Suspect]
  2. ATENOLOL [Concomitant]
  3. SIMVASTATIN [Concomitant]
  4. TAFLUPROST [Concomitant]

REACTIONS (5)
  - Pemphigoid [None]
  - Symblepharon [None]
  - Paraneoplastic pemphigus [None]
  - Eczema [None]
  - Glaucoma [None]
